FAERS Safety Report 7151450-4 (Version None)
Quarter: 2010Q4

REPORT INFORMATION
  Report Type: 
  Country: None (occurrence: None)
  Receive Date: 20101123
  Receipt Date: 20101109
  Transmission Date: 20110411
  Serious: Yes (Other)
  Sender: FDA-Public Use
  Company Number: DE-1184036

PATIENT
  Sex: Female

DRUGS (2)
  1. VIGAMOX [Suspect]
     Dosage: OPHTHALMIC
     Route: 047
     Dates: start: 20101001
  2. POLYSPECTRAN (NEOSPORIN EYE AND EAR) OPHTHALMIC SOLUTION LOT# 10C04A E [Suspect]
     Dosage: OPHTHALMIC
     Route: 047
     Dates: start: 20101102

REACTIONS (3)
  - CORNEAL ABRASION [None]
  - LENTICULAR OPACITIES [None]
  - PROCEDURAL COMPLICATION [None]
